FAERS Safety Report 4932323-1 (Version None)
Quarter: 2006Q1

REPORT INFORMATION
  Report Type: 
  Country: None (occurrence: None)
  Receive Date: 20060228
  Receipt Date: 20060216
  Transmission Date: 20060701
  Serious: Yes (Other)
  Sender: FDA-Public Use
  Company Number: VNL_0100_2006

PATIENT
  Age: 58 Year
  Sex: Male

DRUGS (4)
  1. APO-GO [Suspect]
     Indication: PARKINSON'S DISEASE
     Dosage: 110 MG SC
     Route: 058
  2. CO-BENELDOPA [Concomitant]
  3. CO CARELDOPA [Concomitant]
  4. RIVASTIGMINE [Concomitant]

REACTIONS (4)
  - ERYTHEMA [None]
  - INFECTED EPIDERMAL CYST [None]
  - INFECTED SEBACEOUS CYST [None]
  - SUBCUTANEOUS NODULE [None]
